FAERS Safety Report 5670204-9 (Version None)
Quarter: 2008Q1

REPORT INFORMATION
  Report Type: 
  Country: None (occurrence: None)
  Receive Date: 20080312
  Receipt Date: 20080305
  Transmission Date: 20080703
  Serious: Yes (Other)
  Sender: FDA-Public Use
  Company Number: 2008SP004685

PATIENT
  Age: 55 Year
  Sex: Male

DRUGS (3)
  1. INTRON A [Suspect]
     Indication: GLEICH'S SYNDROME
     Dosage: 2.5 MIU; SC
     Route: 058
  2. PREDNISON [Concomitant]
  3. PREDNISONE TAB [Concomitant]

REACTIONS (5)
  - DEMYELINATION [None]
  - HYPOAESTHESIA [None]
  - MICTURITION URGENCY [None]
  - NERVE DEGENERATION [None]
  - PERIPHERAL COLDNESS [None]
